FAERS Safety Report 18360222 (Version 1)
Quarter: 2020Q4

REPORT INFORMATION
  Report Type: Spontaneous
  Country: US (occurrence: US)
  Receive Date: 20201008
  Receipt Date: 20201008
  Transmission Date: 20210114
  Serious: Yes (Hospitalization)
  Sender: FDA-Public Use
  Company Number: None

PATIENT
  Sex: Female
  Weight: 60.78 kg

DRUGS (13)
  1. CYCLOBENZAPRINE HCL [Concomitant]
     Active Substance: CYCLOBENZAPRINE HYDROCHLORIDE
  2. FAMOTIDINE. [Concomitant]
     Active Substance: FAMOTIDINE
  3. MS CONTIN [Concomitant]
     Active Substance: MORPHINE SULFATE
  4. XGEVA [Concomitant]
     Active Substance: DENOSUMAB
  5. ZOLADEX [Concomitant]
     Active Substance: GOSERELIN ACETATE
  6. VERZENIO [Suspect]
     Active Substance: ABEMACICLIB
     Indication: BREAST CANCER
     Route: 048
     Dates: start: 20200613, end: 20201008
  7. DRAMAMINE [Concomitant]
     Active Substance: DIMENHYDRINATE
  8. DRONABINOL. [Concomitant]
     Active Substance: DRONABINOL
  9. METHADONE HCL [Concomitant]
     Active Substance: METHADONE HYDROCHLORIDE
  10. PERCOCET [Concomitant]
     Active Substance: ACETAMINOPHEN\OXYCODONE HYDROCHLORIDE
  11. FOLIC ACID. [Concomitant]
     Active Substance: FOLIC ACID
  12. ONDANSETRON HCL [Concomitant]
     Active Substance: ONDANSETRON HYDROCHLORIDE
  13. FASLODEX [Concomitant]
     Active Substance: FULVESTRANT

REACTIONS (2)
  - Hospitalisation [None]
  - Therapy interrupted [None]
